FAERS Safety Report 12616224 (Version 3)
Quarter: 2016Q3

REPORT INFORMATION
  Report Type: Spontaneous
  Country: JP (occurrence: JP)
  Receive Date: 20160802
  Receipt Date: 20160901
  Transmission Date: 20161109
  Serious: Yes (Death, Hospitalization, Other)
  Sender: FDA-Public Use
  Company Number: PHJP2016JP021979

PATIENT
  Age: 88 Year
  Sex: Male

DRUGS (1)
  1. EXELON PATCH [Suspect]
     Active Substance: RIVASTIGMINE
     Indication: DEMENTIA ALZHEIMER^S TYPE
     Dosage: 1.9 MG, QD PATCH 2.5 (CM2)
     Route: 062
     Dates: start: 20160706, end: 20160716

REACTIONS (5)
  - Hepatic failure [Unknown]
  - Vomiting [Recovered/Resolved]
  - Renal failure [Unknown]
  - Erythema [Unknown]
  - Altered state of consciousness [Fatal]

NARRATIVE: CASE EVENT DATE: 201607
